FAERS Safety Report 4514630-X (Version None)
Quarter: 2004Q4

REPORT INFORMATION
  Report Type: 
  Country: None (occurrence: None)
  Receive Date: 20041126
  Receipt Date: 20041117
  Transmission Date: 20050328
  Serious: Yes (Disabling)
  Sender: FDA-Public Use
  Company Number: OMPQ-NO-0411S-1359

PATIENT
  Age: 79 Year
  Sex: Male

DRUGS (5)
  1. OMNIPAQUE 140 [Suspect]
     Indication: PANCREATITIS ACUTE
     Dosage: SINGLE DOSE, EXTRAVASTATION
     Dates: start: 20041005, end: 20041005
  2. VEEN G3 [Concomitant]
  3. DEXAPANTHENOL (PANTOL) [Concomitant]
  4. DOPAMINE HYDROCHLORIDE (KAKODIN D0 [Concomitant]
  5. CEFMETAZOLE SODIUM (CEFMETAZON) [Concomitant]

REACTIONS (1)
  - INJECTION SITE ULCER [None]
